FAERS Safety Report 16795591 (Version 1)
Quarter: 2019Q3

REPORT INFORMATION
  Report Type: Spontaneous
  Country: None (occurrence: US)
  Receive Date: 20190911
  Receipt Date: 20190911
  Transmission Date: 20191005
  Serious: No
  Sender: FDA-Public Use
  Company Number: US-ITALFARMACO SPA-2074283

PATIENT
  Sex: Female
  Weight: 58 kg

DRUGS (4)
  1. RADICAVA [Suspect]
     Active Substance: EDARAVONE
     Dates: start: 20190420, end: 20190503
  2. XANAX [Concomitant]
     Active Substance: ALPRAZOLAM
  3. RILUZOLE. [Suspect]
     Active Substance: RILUZOLE
  4. LYRICA [Concomitant]
     Active Substance: PREGABALIN

REACTIONS (2)
  - Depressed mood [Unknown]
  - Diarrhoea [Unknown]
